FAERS Safety Report 14383424 (Version 8)
Quarter: 2018Q4

REPORT INFORMATION
  Report Type: Spontaneous
  Country: US (occurrence: US)
  Receive Date: 20180115
  Receipt Date: 20181130
  Transmission Date: 20190204
  Serious: No
  Sender: FDA-Public Use
  Company Number: US-ASTRAZENECA-2018SE04185

PATIENT
  Sex: Female
  Weight: 44 kg

DRUGS (6)
  1. METOPROLOL. [Suspect]
     Active Substance: METOPROLOL
     Route: 048
  2. AZITHROMYCIN ANHYDROUS. [Concomitant]
     Active Substance: AZITHROMYCIN ANHYDROUS
     Indication: LUNG INFECTION
  3. LISINOPRIL. [Suspect]
     Active Substance: LISINOPRIL
     Route: 048
  4. ACEBUTOLOL [Concomitant]
     Active Substance: ACEBUTOLOL
     Indication: LUNG INFECTION
  5. TUDORZA PRESSAIR [Suspect]
     Active Substance: ACLIDINIUM BROMIDE
     Indication: CHRONIC OBSTRUCTIVE PULMONARY DISEASE
     Route: 055
  6. RIFAMPIN. [Concomitant]
     Active Substance: RIFAMPIN
     Indication: LUNG INFECTION

REACTIONS (19)
  - Fall [Unknown]
  - Cardiac disorder [Unknown]
  - Device malfunction [Unknown]
  - Platelet count decreased [Unknown]
  - Dermatitis [Unknown]
  - Lung infection [Unknown]
  - Tooth loss [Unknown]
  - Dyspnoea [Unknown]
  - Pain [Unknown]
  - Lower respiratory tract infection fungal [Unknown]
  - Gait disturbance [Unknown]
  - Constipation [Unknown]
  - Speech disorder [Unknown]
  - Memory impairment [Unknown]
  - Body height decreased [Unknown]
  - Product dose omission [Unknown]
  - Chromaturia [Unknown]
  - Intentional product misuse [Unknown]
  - Malaise [Unknown]
